FAERS Safety Report 22193424 (Version 1)
Quarter: 2023Q2

REPORT INFORMATION
  Report Type: Spontaneous
  Country: US (occurrence: US)
  Receive Date: 20230410
  Receipt Date: 20230410
  Transmission Date: 20230721
  Serious: No
  Sender: FDA-Public Use
  Company Number: US-002147023-NVSC2023US082515

PATIENT
  Age: 40 Year
  Sex: Male

DRUGS (2)
  1. LEQVIO [Suspect]
     Active Substance: INCLISIRAN SODIUM
     Indication: Low density lipoprotein increased
     Dosage: UNK, 284MG/1.5ML, DAY ONE, MONTH 3, AND THEN EVERY 6 MONTHS
     Route: 058
     Dates: start: 202301
  2. LEQVIO [Suspect]
     Active Substance: INCLISIRAN SODIUM
     Dosage: UNK, SECOND INJECTION 2 WEEKS AGO
     Route: 058

REACTIONS (1)
  - Blood triglycerides increased [Unknown]
